FAERS Safety Report 8335845-9 (Version None)
Quarter: 2012Q2

REPORT INFORMATION
  Report Type: 
  Country: None (occurrence: None)
  Receive Date: 20120502
  Receipt Date: 20120502
  Transmission Date: 20120825
  Serious: Yes (Other)
  Sender: FDA-Public Use
  Company Number: None

PATIENT
  Sex: Female

DRUGS (1)
  1. VENLAFAXINE HYDROCHLORIDE [Suspect]
     Dosage: EFFEXOR XR 150MG ONCE PO QD PT USED ONLY 3 PILLS AND STOPPED

REACTIONS (3)
  - PALPITATIONS [None]
  - BLOOD DISORDER [None]
  - DIZZINESS [None]
